FAERS Safety Report 6555083-X (Version None)
Quarter: 2010Q1

REPORT INFORMATION
  Report Type: 
  Country: None (occurrence: None)
  Receive Date: 20100126
  Receipt Date: 20100126
  Transmission Date: 20100710
  Serious: Yes (Hospitalization)
  Sender: FDA-Public Use
  Company Number: None

PATIENT
  Sex: Male
  Weight: 79.6 kg

DRUGS (1)
  1. NEXAVAR [Suspect]
     Indication: HEPATIC NEOPLASM MALIGNANT
     Dosage: 400 MG BID ORAL
     Route: 048
     Dates: start: 20100108, end: 20100121

REACTIONS (4)
  - CELLULITIS [None]
  - IMPAIRED HEALING [None]
  - SKIN ULCER [None]
  - WOUND INFECTION PSEUDOMONAS [None]
